FAERS Safety Report 22640658 (Version 1)
Quarter: 2023Q2

REPORT INFORMATION
  Report Type: Spontaneous
  Country: US (occurrence: US)
  Receive Date: 20230626
  Receipt Date: 20230626
  Transmission Date: 20230722
  Serious: Yes (Other)
  Sender: FDA-Public Use
  Company Number: US-MYLANLABS-2023M1066275

PATIENT
  Age: 15 Year
  Sex: Female

DRUGS (15)
  1. PAROXETINE [Suspect]
     Active Substance: PAROXETINE
     Indication: Generalised anxiety disorder
     Dosage: UNK
     Route: 065
  2. PAROXETINE [Suspect]
     Active Substance: PAROXETINE
     Indication: Depression
  3. PAROXETINE [Suspect]
     Active Substance: PAROXETINE
     Indication: Obsessive-compulsive disorder
  4. CITALOPRAM [Suspect]
     Active Substance: CITALOPRAM HYDROBROMIDE
     Indication: Depression
     Dosage: UNK
     Route: 065
  5. ESCITALOPRAM [Suspect]
     Active Substance: ESCITALOPRAM OXALATE
     Indication: Depression
     Dosage: UNK
     Route: 065
  6. ESCITALOPRAM [Suspect]
     Active Substance: ESCITALOPRAM OXALATE
     Indication: Generalised anxiety disorder
  7. SERTRALINE [Suspect]
     Active Substance: SERTRALINE HYDROCHLORIDE
     Indication: Generalised anxiety disorder
     Dosage: UNK
     Route: 065
  8. SERTRALINE [Suspect]
     Active Substance: SERTRALINE HYDROCHLORIDE
     Indication: Depression
  9. SERTRALINE [Suspect]
     Active Substance: SERTRALINE HYDROCHLORIDE
     Indication: Obsessive-compulsive disorder
  10. HALOPERIDOL [Suspect]
     Active Substance: HALOPERIDOL
     Indication: Schizoaffective disorder bipolar type
     Dosage: 12 MILLIGRAM, QD (ADMINISTERED AT BEDTIME)
     Route: 048
  11. RISPERIDONE [Suspect]
     Active Substance: RISPERIDONE
     Indication: Schizoaffective disorder bipolar type
     Dosage: 4 MILLIGRAM, QD (ADMINISTERED AT BEDTIME)
     Route: 048
  12. BENZTROPINE [Suspect]
     Active Substance: BENZTROPINE
     Indication: Drug therapy
     Dosage: 1 MILLIGRAM, BID
     Route: 048
  13. BENZTROPINE [Suspect]
     Active Substance: BENZTROPINE
     Dosage: 0.5 MILLIGRAM, QW, TAPERED (STOPPED AND WITHIN 2 WEEKS OF THE FINAL TAPERED DOSE)
     Route: 048
  14. BENZTROPINE [Suspect]
     Active Substance: BENZTROPINE
     Dosage: UNK, RE-INTRODUCED
     Route: 048
  15. BENZTROPINE [Suspect]
     Active Substance: BENZTROPINE
     Dosage: UNK, DOSE INCREASED OVER THE NEXT 2 WEEKS ACHIEVING THE ORIGINAL DOSE OF 1MG TWICE DAILY
     Route: 048

REACTIONS (4)
  - Heterophoria [Unknown]
  - Psychotic disorder [Recovering/Resolving]
  - Dyskinesia [Recovered/Resolved]
  - Withdrawal syndrome [Recovered/Resolved]
